FAERS Safety Report 8132413-9 (Version None)
Quarter: 2012Q1

REPORT INFORMATION
  Report Type: 
  Country: None (occurrence: None)
  Receive Date: 20120213
  Receipt Date: 20120131
  Transmission Date: 20120608
  Serious: Yes (Hospitalization, Other)
  Sender: FDA-Public Use
  Company Number: US-ELI_LILLY_AND_COMPANY-US201202000810

PATIENT
  Sex: Female

DRUGS (13)
  1. SIMVASTATIN [Concomitant]
  2. OXYBUTYNIN [Concomitant]
  3. WARFARIN SODIUM [Concomitant]
  4. TALWIN [Concomitant]
  5. LYRICA [Concomitant]
  6. PLAVIX [Concomitant]
  7. OSCAL                              /00751519/ [Concomitant]
     Dosage: UNK
  8. TRAVOPROST [Concomitant]
  9. SINGULAIR [Concomitant]
  10. FORTEO [Suspect]
     Indication: OSTEOPOROSIS
     Dosage: 20 UG, QD
     Route: 065
  11. POTASSIUM [Concomitant]
  12. MULTI-VITAMIN [Concomitant]
  13. CYMBALTA [Concomitant]

REACTIONS (5)
  - EYE OPERATION [None]
  - FALL [None]
  - DRUG DOSE OMISSION [None]
  - LOWER LIMB FRACTURE [None]
  - INCORRECT STORAGE OF DRUG [None]
